FAERS Safety Report 9992238 (Version 1)
Quarter: 2014Q1

REPORT INFORMATION
  Report Type: Spontaneous
  Country: US (occurrence: None)
  Receive Date: 20140228
  Receipt Date: 20140228
  Transmission Date: 20141002
  Serious: Yes (Hospitalization)
  Sender: FDA-Public Use
  Company Number: UTC-034453

PATIENT
  Age: 19 Year
  Sex: Female
  Weight: 55.9 kg

DRUGS (4)
  1. REMODULIN [Suspect]
     Indication: COR PULMONALE CHRONIC
     Dosage: 0.1 UG/KG, 1 IN 1 MIN)
     Route: 058
     Dates: start: 20120928
  2. TRACLEER [Concomitant]
  3. COUMADIN [Concomitant]
  4. REVATIO [Concomitant]

REACTIONS (1)
  - Oedema peripheral [None]
